FAERS Safety Report 11026967 (Version 1)
Quarter: 2015Q2

REPORT INFORMATION
  Report Type: Spontaneous
  Country: CA (occurrence: CA)
  Receive Date: 20150414
  Receipt Date: 20150414
  Transmission Date: 20150821
  Serious: Yes (Other)
  Sender: FDA-Public Use
  Company Number: CA-BAYER-2015-117936

PATIENT
  Age: 34 Year
  Sex: Female

DRUGS (1)
  1. MIRENA [Suspect]
     Active Substance: LEVONORGESTREL
     Dosage: 20 MCG/24HR, CONT
     Route: 015
     Dates: start: 20140403

REACTIONS (10)
  - Device expulsion [None]
  - Pre-existing condition improved [None]
  - Genital haemorrhage [None]
  - Menstrual disorder [None]
  - Bronchitis [Recovering/Resolving]
  - Hirsutism [Not Recovered/Not Resolved]
  - Menorrhagia [None]
  - Menorrhagia [None]
  - Dysmenorrhoea [None]
  - Libido decreased [Not Recovered/Not Resolved]

NARRATIVE: CASE EVENT DATE: 2014
